FAERS Safety Report 9753674 (Version 2)
Quarter: 2015Q3

REPORT INFORMATION
  Report Type: Spontaneous
  Country: US (occurrence: US)
  Receive Date: 20131213
  Receipt Date: 20150805
  Transmission Date: 20151125
  Serious: No
  Sender: FDA-Public Use
  Company Number: US-GILEAD-2009-0026026

PATIENT
  Age: 57 Year
  Sex: Female
  Weight: 160.57 kg

DRUGS (9)
  1. LETAIRIS [Suspect]
     Active Substance: AMBRISENTAN
     Indication: PULMONARY ARTERIAL HYPERTENSION
     Route: 048
     Dates: start: 20081210
  2. ZOCOR [Concomitant]
     Active Substance: SIMVASTATIN
  3. ADVIL [Concomitant]
     Active Substance: IBUPROFEN
  4. BUMEX [Concomitant]
     Active Substance: BUMETANIDE
  5. PROTONIX [Concomitant]
     Active Substance: PANTOPRAZOLE SODIUM
  6. COUMADIN [Concomitant]
     Active Substance: WARFARIN SODIUM
  7. RESTORIL [Concomitant]
     Active Substance: TEMAZEPAM
  8. ADVAIR HFA [Concomitant]
     Active Substance: FLUTICASONE PROPIONATE\SALMETEROL XINAFOATE
  9. MELLARIL [Concomitant]
     Active Substance: THIORIDAZINE HYDROCHLORIDE

REACTIONS (1)
  - Dizziness [Unknown]
